FAERS Safety Report 13276164 (Version 1)
Quarter: 2017Q1

REPORT INFORMATION
  Report Type: Spontaneous
  Country: US (occurrence: US)
  Receive Date: 20170227
  Receipt Date: 20170227
  Transmission Date: 20170428
  Serious: No
  Sender: FDA-Public Use
  Company Number: None

PATIENT
  Age: 4 Year
  Sex: Male
  Weight: 16.2 kg

DRUGS (5)
  1. ALBUTEROL. [Concomitant]
     Active Substance: ALBUTEROL
  2. PROBIOTIC [Concomitant]
     Active Substance: PROBIOTICS NOS
  3. FLONASE [Concomitant]
     Active Substance: FLUTICASONE PROPIONATE
  4. QVAR [Concomitant]
     Active Substance: BECLOMETHASONE DIPROPIONATE
  5. KARBINAL ER [Suspect]
     Active Substance: CARBINOXAMINE MALEATE
     Indication: MULTIPLE ALLERGIES
     Dosage: QUANTITY:0.5 TEASPOON(S);?
     Route: 048
     Dates: start: 20170223, end: 20170227

REACTIONS (2)
  - Urinary retention [None]
  - Pollakiuria [None]

NARRATIVE: CASE EVENT DATE: 20170225
